FAERS Safety Report 20036950 (Version 1)
Quarter: 2021Q4

REPORT INFORMATION
  Report Type: Spontaneous
  Country: US (occurrence: US)
  Receive Date: 20211105
  Receipt Date: 20211105
  Transmission Date: 20220303
  Serious: Yes (Other)
  Sender: FDA-Public Use
  Company Number: US-GLAXOSMITHKLINE-US2021GSK226979

PATIENT
  Sex: Female

DRUGS (4)
  1. RANITIDINE [Suspect]
     Active Substance: RANITIDINE
     Indication: Erosive oesophagitis
     Dosage: 300 MG, QD
     Route: 065
     Dates: start: 199901, end: 201909
  2. RANITIDINE [Suspect]
     Active Substance: RANITIDINE
     Dosage: 600 MG, QD
     Route: 065
     Dates: start: 199901, end: 201909
  3. RANITIDINE [Suspect]
     Active Substance: RANITIDINE
     Indication: Erosive oesophagitis
     Dosage: 300 MG, QD
     Route: 065
     Dates: start: 199901, end: 201909
  4. RANITIDINE [Suspect]
     Active Substance: RANITIDINE
     Dosage: 600 MG, QD
     Route: 065
     Dates: start: 199901, end: 201909

REACTIONS (1)
  - Breast cancer [Unknown]
